FAERS Safety Report 5511937-4 (Version None)
Quarter: 2007Q4

REPORT INFORMATION
  Report Type: 
  Country: None (occurrence: None)
  Receive Date: 20071109
  Receipt Date: 20071029
  Transmission Date: 20080405
  Serious: Yes (Other)
  Sender: FDA-Public Use
  Company Number: KR-PFIZER INC-2007092398

PATIENT
  Sex: Female

DRUGS (1)
  1. AMLODIPINE [Suspect]
     Route: 048

REACTIONS (4)
  - BLOOD PRESSURE INCREASED [None]
  - EPISTAXIS [None]
  - EYE HAEMORRHAGE [None]
  - MOUTH HAEMORRHAGE [None]
